FAERS Safety Report 20773369 (Version 1)
Quarter: 2022Q2

REPORT INFORMATION
  Report Type: Report from Study
  Country: US (occurrence: US)
  Receive Date: 20220502
  Receipt Date: 20220502
  Transmission Date: 20220720
  Serious: Yes (Other)
  Sender: FDA-Public Use
  Company Number: US-Accord-262530

PATIENT
  Age: 64 Year
  Sex: Female
  Weight: 76.66 kg

DRUGS (6)
  1. CLOZAPINE [Suspect]
     Active Substance: CLOZAPINE
     Indication: Schizoaffective disorder
     Dosage: AT NIGHT BY MOUTH
     Route: 048
  2. FLUOXETINE [Concomitant]
     Active Substance: FLUOXETINE HYDROCHLORIDE
     Dosage: ONE CAPSULE TWICE DAILY
  3. CALCIUM [Concomitant]
     Active Substance: CALCIUM
     Dosage: DAILY
  4. CLONAZEPAM [Concomitant]
     Active Substance: CLONAZEPAM
     Dosage: PER DAY IN 3 DIVIDED DOSES
  5. VITAMIN D [Concomitant]
     Active Substance: VITAMIN D NOS
     Dosage: OVER THE COUNTER
  6. TYLENOL [Concomitant]
     Active Substance: ACETAMINOPHEN
     Dosage: AS NEEDED

REACTIONS (1)
  - Neutrophilia [Unknown]

NARRATIVE: CASE EVENT DATE: 20220425
